FAERS Safety Report 8822494 (Version 3)
Quarter: 2013Q1

REPORT INFORMATION
  Report Type: Spontaneous
  Country: US (occurrence: US)
  Receive Date: 20121003
  Receipt Date: 20130122
  Transmission Date: 20140127
  Serious: Yes (Other)
  Sender: FDA-Public Use
  Company Number: US-ELI_LILLY_AND_COMPANY-US201209005945

PATIENT
  Age: 61 Year
  Sex: Female
  Weight: 101.4 kg

DRUGS (6)
  1. CYMBALTA [Suspect]
     Indication: DEPRESSION
     Dosage: 60 MG, QD
     Dates: end: 201209
  2. ROXICODONE [Concomitant]
     Indication: PAIN
     Dosage: 15 MG, UNK
     Dates: start: 2006
  3. BUSPAR [Concomitant]
     Indication: ANXIETY
     Dosage: 10 MG, TID
  4. CELEXA [Concomitant]
     Dosage: 40 MG, QD
  5. ROBAXIN [Concomitant]
     Indication: PAIN
     Dosage: UNK, EVERY 8 HRS
     Dates: start: 2008
  6. ZANAFLEX [Concomitant]
     Dosage: UNK, EACH EVENING

REACTIONS (3)
  - Weight increased [Unknown]
  - Obesity [Unknown]
  - Wrong technique in drug usage process [Unknown]
